FAERS Safety Report 5766903-0 (Version None)
Quarter: 2008Q2

REPORT INFORMATION
  Report Type: 
  Country: None (occurrence: None)
  Receive Date: 20080612
  Receipt Date: 20080604
  Transmission Date: 20081010
  Serious: Yes (Other)
  Sender: FDA-Public Use
  Company Number: US-JNJFOC-20080602010

PATIENT
  Sex: Female
  Weight: 45.36 kg

DRUGS (1)
  1. TYLENOL W/ CODEINE [Suspect]
     Indication: NEURALGIA
     Dosage: DOSAGE: 30/300MG
     Route: 048

REACTIONS (3)
  - DYSPNOEA [None]
  - HYPERSENSITIVITY [None]
  - PHARYNGEAL OEDEMA [None]
